FAERS Safety Report 25833873 (Version 1)
Quarter: 2025Q3

REPORT INFORMATION
  Report Type: Spontaneous
  Country: GB (occurrence: GB)
  Receive Date: 20250923
  Receipt Date: 20250923
  Transmission Date: 20251020
  Serious: Yes (Other)
  Sender: TEVA
  Company Number: None

PATIENT
  Age: 78 Year
  Sex: Male
  Weight: 100 kg

DRUGS (2)
  1. MIRTAZAPINE [Suspect]
     Active Substance: MIRTAZAPINE
     Indication: Depression
     Dosage: AT NIGHT
     Route: 065
     Dates: start: 20250827, end: 20250902
  2. MIRTAZAPINE [Suspect]
     Active Substance: MIRTAZAPINE
     Indication: Depression
     Dosage: AT NIGHT, ACCORD-UK
     Route: 065
     Dates: start: 20250827, end: 20250902

REACTIONS (1)
  - Incontinence [Recovered/Resolved]

NARRATIVE: CASE EVENT DATE: 20250828
